FAERS Safety Report 13187542 (Version 1)
Quarter: 2017Q1

REPORT INFORMATION
  Report Type: Spontaneous
  Country: US (occurrence: US)
  Receive Date: 20170206
  Receipt Date: 20170206
  Transmission Date: 20170428
  Serious: No
  Sender: FDA-Public Use
  Company Number: US-PFIZER INC-2017046964

PATIENT
  Age: 76 Year
  Sex: Female
  Weight: 73 kg

DRUGS (7)
  1. HYDROCHLOROTHIAZIDE. [Concomitant]
     Active Substance: HYDROCHLOROTHIAZIDE
     Indication: BLOOD PRESSURE ABNORMAL
     Dosage: UNK
  2. BISOPROLOL FUMARATE. [Concomitant]
     Active Substance: BISOPROLOL FUMARATE
     Indication: BLOOD PRESSURE ABNORMAL
     Dosage: UNK
  3. LYRICA [Suspect]
     Active Substance: PREGABALIN
     Dosage: 150 MG, 2X/DAY
     Dates: start: 201701
  4. LYRICA [Suspect]
     Active Substance: PREGABALIN
     Indication: BACK PAIN
     Dosage: 150 MG, 3X/DAY
     Dates: start: 20160915
  5. AMLODIPINE BESYLATE. [Concomitant]
     Active Substance: AMLODIPINE BESYLATE
     Indication: BLOOD PRESSURE ABNORMAL
     Dosage: UNK
  6. OXYMORPHONE [Concomitant]
     Active Substance: OXYMORPHONE
     Indication: BREAKTHROUGH PAIN
     Dosage: 10 MG, UNK
  7. HYDROMORPHONE [Concomitant]
     Active Substance: HYDROMORPHONE
     Indication: PAIN
     Dosage: 32 MG EXTENDED RELEASE PILL, 1X/DAY

REACTIONS (11)
  - Sedation [Unknown]
  - Somnolence [Unknown]
  - Vision blurred [Unknown]
  - Dysstasia [Unknown]
  - Malaise [Unknown]
  - Insomnia [Unknown]
  - Gait disturbance [Unknown]
  - Dry mouth [Unknown]
  - Nausea [Unknown]
  - Dizziness [Unknown]
  - Disturbance in attention [Unknown]

NARRATIVE: CASE EVENT DATE: 20170127
